FAERS Safety Report 19274581 (Version 1)
Quarter: 2021Q2

REPORT INFORMATION
  Report Type: Spontaneous
  Country: CN (occurrence: CN)
  Receive Date: 20210519
  Receipt Date: 20210519
  Transmission Date: 20210717
  Serious: Yes (Other)
  Sender: FDA-Public Use
  Company Number: CN-ACCORD-225098

PATIENT
  Age: 57 Year
  Sex: Male

DRUGS (12)
  1. FOLINIC ACID [Suspect]
     Active Substance: LEUCOVORIN
     Indication: METASTASES TO LIVER
     Dates: start: 201903, end: 201903
  2. GIMERACIL/OTERACIL/TEGAFUR [Suspect]
     Active Substance: GIMERACIL\OTERACIL\TEGAFUR
     Indication: METASTASES TO LIVER
     Dosage: 40 MG TWICE PER DAY FROM DAY 1 TODAY 14
     Dates: start: 201903, end: 201903
  3. OLAPARIB. [Suspect]
     Active Substance: OLAPARIB
     Indication: METASTASES TO LIVER
     Dates: start: 201903, end: 201903
  4. OXALIPLATIN. [Suspect]
     Active Substance: OXALIPLATIN
     Indication: METASTASES TO LIVER
     Dosage: OXALIPLATIN AT A DOSE OF 150 MG ON DAYS 1AND 15
     Dates: start: 201903, end: 201903
  5. FLUOROURACIL. [Suspect]
     Active Substance: FLUOROURACIL
     Indication: PANCREATIC CARCINOMA METASTATIC
     Dates: start: 201903, end: 201903
  6. FOLINIC ACID [Suspect]
     Active Substance: LEUCOVORIN
     Indication: PANCREATIC CARCINOMA METASTATIC
     Dates: start: 201903, end: 201903
  7. FLUOROURACIL. [Suspect]
     Active Substance: FLUOROURACIL
     Indication: METASTASES TO LIVER
     Dates: start: 201903, end: 201903
  8. OXALIPLATIN. [Suspect]
     Active Substance: OXALIPLATIN
     Indication: METASTASES TO LIVER
     Dosage: OXALIPLATIN AT A DOSE OF 150 MG ON DAYS 1AND 15
     Dates: start: 201903, end: 201903
  9. OLAPARIB. [Suspect]
     Active Substance: OLAPARIB
     Indication: PANCREATIC CARCINOMA METASTATIC
     Dates: start: 201903, end: 201903
  10. IRINOTECAN [Suspect]
     Active Substance: IRINOTECAN
     Indication: METASTASES TO LIVER
     Dosage: IRINOTECAN AT A DOSE OF 100 MG ON DAYS 1, 8, 15
     Dates: start: 201903, end: 201903
  11. GIMERACIL/OTERACIL/TEGAFUR [Suspect]
     Active Substance: GIMERACIL\OTERACIL\TEGAFUR
     Indication: METASTASES TO LIVER
     Dosage: 40 MG TWICE PER DAY FROM DAY 1 TODAY 14
     Dates: start: 201903, end: 201903
  12. IRINOTECAN [Suspect]
     Active Substance: IRINOTECAN
     Indication: PANCREATIC CARCINOMA METASTATIC
     Dosage: IRINOTECAN AT A DOSE OF 100 MG ON DAYS 1, 8, 15
     Dates: start: 201903, end: 201903

REACTIONS (7)
  - Thrombocytopenia [Unknown]
  - Fatigue [Unknown]
  - Leukopenia [Unknown]
  - Asthenia [Unknown]
  - Decreased appetite [Unknown]
  - Diarrhoea [Unknown]
  - Myelosuppression [Unknown]

NARRATIVE: CASE EVENT DATE: 201903
